FAERS Safety Report 5227015-8 (Version None)
Quarter: 2007Q1

REPORT INFORMATION
  Report Type: 
  Country: None (occurrence: None)
  Receive Date: 20070201
  Receipt Date: 20070201
  Transmission Date: 20070707
  Serious: Yes (Other)
  Sender: FDA-Public Use
  Company Number: None

PATIENT
  Sex: Male
  Weight: 74.8435 kg

DRUGS (2)
  1. OCTREOTIDE [Suspect]
     Indication: CARCINOID TUMOUR
     Dosage: 1000MG/ML Q6HOUR INJ
     Dates: start: 20060718
  2. OCTREOTIDE [Suspect]
     Indication: DIARRHOEA
     Dosage: 1000MG/ML Q6HOUR INJ
     Dates: start: 20060718

REACTIONS (2)
  - INJECTION SITE IRRITATION [None]
  - INJECTION SITE PAIN [None]
